FAERS Safety Report 10029203 (Version 1)
Quarter: 2014Q1

REPORT INFORMATION
  Report Type: Spontaneous
  Country: CH (occurrence: CH)
  Receive Date: 20140321
  Receipt Date: 20140321
  Transmission Date: 20141002
  Serious: Yes (Other)
  Sender: FDA-Public Use
  Company Number: PHHY2014CH030702

PATIENT
  Age: 84 Year
  Sex: Female

DRUGS (13)
  1. DIGOXIN [Suspect]
     Dosage: 0.125 MG, QD
     Route: 048
  2. VENLAFAXINE [Interacting]
     Indication: SCHIZOAFFECTIVE DISORDER BIPOLAR TYPE
     Dosage: 225 MG, PER DAY
     Route: 048
  3. VENLAFAXINE [Interacting]
     Dosage: 150 MG, PER DAY
     Route: 048
     Dates: start: 20140207
  4. VENLAFAXINE [Interacting]
     Dosage: 75 MG, PER DAY (IN 1 DOSE IN THE MORNING)
     Route: 048
     Dates: start: 20140212, end: 20140213
  5. REMERON [Interacting]
     Indication: SCHIZOAFFECTIVE DISORDER BIPOLAR TYPE
     Dosage: 30 MG, PER DAY
     Route: 048
  6. REMERON [Interacting]
     Dosage: 45 MG, PER DAY
     Route: 048
     Dates: start: 20140130
  7. NORTRILEN [Interacting]
     Indication: SCHIZOAFFECTIVE DISORDER BIPOLAR TYPE
     Dosage: 75 MG, PER DAY
     Route: 048
     Dates: start: 20140206
  8. NORTRILEN [Interacting]
     Dosage: 100 MG, PER DAY
     Route: 048
     Dates: start: 20140219
  9. SOLIAN [Interacting]
     Indication: SCHIZOAFFECTIVE DISORDER BIPOLAR TYPE
     Dosage: 400 MG, BID
     Route: 048
     Dates: start: 20140128
  10. ZANIDIP [Concomitant]
     Dosage: 10 MG, QD
     Route: 048
  11. DISTRANEURIN [Concomitant]
     Dosage: 300 MG, TID
     Route: 048
  12. DOXIUM [Concomitant]
     Dosage: 500 MG, BID
     Route: 048
  13. MAGNESIUM DIASPORAL [Concomitant]
     Dosage: 300 MG, QD
     Route: 048

REACTIONS (3)
  - Electrocardiogram QT prolonged [Not Recovered/Not Resolved]
  - Atrioventricular block first degree [Not Recovered/Not Resolved]
  - Bundle branch block left [Not Recovered/Not Resolved]
